FAERS Safety Report 15617337 (Version 4)
Quarter: 2019Q1

REPORT INFORMATION
  Report Type: Spontaneous
  Country: AT (occurrence: AT)
  Receive Date: 20181114
  Receipt Date: 20190214
  Transmission Date: 20190417
  Serious: Yes (Death, Hospitalization, Other)
  Sender: FDA-Public Use
  Company Number: AT-MYLANLABS-2018M1085553

PATIENT
  Age: 74 Year
  Sex: Male
  Weight: 61 kg

DRUGS (11)
  1. CAPECITABINE. [Suspect]
     Active Substance: CAPECITABINE
     Indication: PANCREATIC CARCINOMA
  2. GEMCITABINE [Suspect]
     Active Substance: GEMCITABINE\GEMCITABINE HYDROCHLORIDE
     Indication: ADENOCARCINOMA
     Dosage: UNK
     Route: 065
  3. FLUOROURACIL. [Suspect]
     Active Substance: FLUOROURACIL
     Dosage: UNK UNK, Q3W (UNK UNK, TIW)
     Route: 065
     Dates: start: 201609
  4. FLUOROURACIL. [Suspect]
     Active Substance: FLUOROURACIL
     Indication: ADENOCARCINOMA
     Dosage: UNK
     Route: 065
  5. FOLINIC ACID [Suspect]
     Active Substance: LEUCOVORIN
     Dosage: UNK
     Route: 065
     Dates: start: 201612
  6. IRINOLIQUID [Suspect]
     Active Substance: IRINOTECAN HYDROCHLORIDE
     Dosage: 20 MILLIGRAM PER MILLILITRE
     Route: 041
     Dates: start: 200612
  7. EBETAXEL [Suspect]
     Active Substance: PACLITAXEL
     Indication: ADENOCARCINOMA
     Dosage: 6 MILLIGRAM PER LITRE
     Route: 041
  8. CAPECITABINE. [Suspect]
     Active Substance: CAPECITABINE
     Indication: ADENOCARCINOMA
     Dosage: UNK, CYCLE
     Route: 065
  9. IRINOLIQUID [Suspect]
     Active Substance: IRINOTECAN HYDROCHLORIDE
     Indication: ADENOCARCINOMA
     Dosage: 20 MILLIGRAM PER MILLILITRE
     Route: 041
     Dates: start: 201612
  10. OXALIPLATIN. [Suspect]
     Active Substance: OXALIPLATIN
     Indication: ADENOCARCINOMA
     Dosage: UNK
     Route: 065
  11. FOLINIC ACID [Suspect]
     Active Substance: LEUCOVORIN
     Indication: ADENOCARCINOMA
     Dosage: 1 DOSAGE FORM, Q3W,UNK UNK, TIW
     Route: 065
     Dates: start: 201609

REACTIONS (9)
  - Diverticulitis [Fatal]
  - Fatigue [Unknown]
  - Neuropathy peripheral [Unknown]
  - Asthenia [Unknown]
  - Adenocarcinoma [Unknown]
  - Metastases to liver [Recovering/Resolving]
  - Gait disturbance [Unknown]
  - Dizziness [Unknown]
  - Malignant neoplasm progression [Unknown]

NARRATIVE: CASE EVENT DATE: 201704
